FAERS Safety Report 6148403-1 (Version None)
Quarter: 2009Q2

REPORT INFORMATION
  Report Type: 
  Country: None (occurrence: None)
  Receive Date: 20090408
  Receipt Date: 20090405
  Transmission Date: 20091009
  Serious: Yes (Death)
  Sender: FDA-Public Use
  Company Number: IL-WYE-H08830509

PATIENT
  Age: 57 Year
  Sex: Male

DRUGS (4)
  1. TYGACIL [Suspect]
     Indication: ACINETOBACTER INFECTION
     Route: 042
     Dates: start: 20090329
  2. TYGACIL [Suspect]
     Indication: PNEUMONIA
  3. COLISTIN SULFATE [Suspect]
     Indication: PNEUMONIA
     Dosage: UNKNOWN
  4. COLISTIN SULFATE [Suspect]
     Indication: ACINETOBACTER INFECTION

REACTIONS (1)
  - DEATH [None]
